FAERS Safety Report 8385626-5 (Version None)
Quarter: 2012Q2

REPORT INFORMATION
  Report Type: 
  Country: None (occurrence: None)
  Receive Date: 20120525
  Receipt Date: 20120521
  Transmission Date: 20120825
  Serious: No
  Sender: FDA-Public Use
  Company Number: US-PFIZER INC-2012123441

PATIENT
  Sex: Male

DRUGS (1)
  1. INLYTA [Suspect]
     Indication: BREAST CANCER
     Dosage: 5 MG, 2X/DAY
     Dates: start: 20120416

REACTIONS (2)
  - DISEASE PROGRESSION [None]
  - BREAST CANCER [None]
